FAERS Safety Report 21424624 (Version 1)
Quarter: 2022Q4

REPORT INFORMATION
  Report Type: Report from Study
  Country: US (occurrence: US)
  Receive Date: 20221007
  Receipt Date: 20221007
  Transmission Date: 20230113
  Serious: Yes (Hospitalization, Other)
  Sender: FDA-Public Use
  Company Number: US-BRISTOL-MYERS SQUIBB COMPANY-2022-115139

PATIENT
  Age: 68 Year
  Sex: Male
  Weight: 70.76 kg

DRUGS (28)
  1. POMALYST [Suspect]
     Active Substance: POMALIDOMIDE
     Indication: Plasma cell myeloma
     Route: 048
     Dates: start: 20181029
  2. POMALYST [Suspect]
     Active Substance: POMALIDOMIDE
     Indication: Illness
     Route: 048
     Dates: start: 20220801
  3. DEXAMETHASONE [Concomitant]
     Active Substance: DEXAMETHASONE
     Route: 065
  4. ASPIRIN [Concomitant]
     Active Substance: ASPIRIN
     Route: 065
  5. XARELTO [Concomitant]
     Active Substance: RIVAROXABAN
  6. TADALAFIL [Concomitant]
     Active Substance: TADALAFIL
  7. OXYCODONE [Concomitant]
     Active Substance: OXYCODONE
  8. LISINOPRIL [Concomitant]
     Active Substance: LISINOPRIL
  9. ENTRESTO [Concomitant]
     Active Substance: SACUBITRIL\VALSARTAN
  10. HYDROXYZINE [Concomitant]
     Active Substance: HYDROXYZINE HYDROCHLORIDE
  11. MOMETASONE FUROATE [Concomitant]
     Active Substance: MOMETASONE FUROATE
  12. MIRALAX [Concomitant]
     Active Substance: POLYETHYLENE GLYCOL 3350
  13. EPLERENONE [Concomitant]
     Active Substance: EPLERENONE
  14. ASPIRIN [Concomitant]
     Active Substance: ASPIRIN
  15. FUROSEMIDE [Concomitant]
     Active Substance: FUROSEMIDE
  16. PANTOPRAZOLE SODIUM ANHYDROUS [Concomitant]
     Active Substance: PANTOPRAZOLE SODIUM ANHYDROUS
  17. ENTECAVIR [Concomitant]
     Active Substance: ENTECAVIR
  18. ATORVASTATIN CALCIUM [Concomitant]
     Active Substance: ATORVASTATIN CALCIUM
  19. MAGNESIUM SALICYLATE [Concomitant]
     Active Substance: MAGNESIUM SALICYLATE
  20. COLESEVELAM [Concomitant]
     Active Substance: COLESEVELAM
  21. TACROLIMUS [Concomitant]
     Active Substance: TACROLIMUS
  22. METOPROLOL SUCCINATE [Concomitant]
     Active Substance: METOPROLOL SUCCINATE
  23. CALCIUM [Concomitant]
     Active Substance: CALCIUM
  24. LORAZEPAM [Concomitant]
     Active Substance: LORAZEPAM
  25. VITAMIN B12 [Concomitant]
     Active Substance: CYANOCOBALAMIN
  26. ONDANSETRON [Concomitant]
     Active Substance: ONDANSETRON
  27. VITAMIN C [Concomitant]
     Active Substance: ASCORBIC ACID
  28. MIRTAZAPINE [Concomitant]
     Active Substance: MIRTAZAPINE

REACTIONS (3)
  - Jaw fracture [Unknown]
  - White blood cell count decreased [Unknown]
  - T-lymphocyte count decreased [Unknown]

NARRATIVE: CASE EVENT DATE: 20220901
